FAERS Safety Report 24241390 (Version 1)
Quarter: 2024Q3

REPORT INFORMATION
  Report Type: Other
  Country: GB (occurrence: GB)
  Receive Date: 20240823
  Receipt Date: 20240823
  Transmission Date: 20241016
  Serious: Yes (Other)
  Sender: ARGENX BVBA
  Company Number: GB-ARGENX-2024-ARGX-GB006772

PATIENT

DRUGS (2)
  1. VYVGART [Suspect]
     Active Substance: EFGARTIGIMOD ALFA-FCAB
     Indication: Myasthenia gravis
     Dosage: UNK
     Route: 065
  2. CLARITHROMYCIN [Suspect]
     Active Substance: CLARITHROMYCIN
     Indication: Urinary tract infection
     Dosage: UNK
     Route: 065

REACTIONS (15)
  - Peripheral swelling [Unknown]
  - Eye contusion [Unknown]
  - Malaise [Unknown]
  - Abdominal pain lower [Unknown]
  - Myasthenia gravis [Unknown]
  - Contusion [Unknown]
  - Chest pain [Unknown]
  - Loss of personal independence in daily activities [Unknown]
  - Symptom recurrence [Unknown]
  - Blood pressure increased [Unknown]
  - Nausea [Unknown]
  - Periorbital swelling [Unknown]
  - Lower respiratory tract infection [Unknown]
  - Urinary tract infection [Unknown]
  - Therapeutic product effect decreased [Unknown]

NARRATIVE: CASE EVENT DATE: 20230529
